FAERS Safety Report 10178792 (Version 1)
Quarter: 2014Q2

REPORT INFORMATION
  Report Type: Spontaneous
  Country: US (occurrence: None)
  Receive Date: 20140515
  Receipt Date: 20140515
  Transmission Date: 20141212
  Serious: Yes (Other)
  Sender: FDA-Public Use
  Company Number: AEGR000448

PATIENT
  Age: 64 Year
  Sex: Female
  Weight: 90.7 kg

DRUGS (2)
  1. JUXTAPID [Suspect]
     Indication: TYPE IIA HYPERLIPIDAEMIA
     Route: 048
     Dates: start: 20140426
  2. CRESTOR (ROSUVASTATIN CALCIUM) [Concomitant]

REACTIONS (5)
  - Loss of consciousness [None]
  - Face injury [None]
  - Migraine [None]
  - Abdominal pain upper [None]
  - Nausea [None]
